FAERS Safety Report 5087410-7 (Version None)
Quarter: 2006Q3

REPORT INFORMATION
  Report Type: 
  Country: None (occurrence: None)
  Receive Date: 20060821
  Receipt Date: 20060809
  Transmission Date: 20061208
  Serious: Yes (Life-Threatening, Hospitalization)
  Sender: FDA-Public Use
  Company Number: HQWYE328810AUG06

PATIENT
  Age: 64 Year
  Sex: Female

DRUGS (9)
  1. MYLOTARG (GEMTUZMAB OZOGAMICIN, INJECTION) [Suspect]
     Indication: ACUTE MYELOID LEUKAEMIA RECURRENT
     Dosage: 9 MG/M^2 PER 1 DAY INTRAVENOUS DRIP
     Route: 041
     Dates: start: 20060201, end: 20060201
  2. MYLOTARG (GEMTUZMAB OZOGAMICIN, INJECTION) [Suspect]
     Indication: ACUTE MYELOID LEUKAEMIA RECURRENT
     Dosage: 9 MG/M^2 PER 1 DAY INTRAVENOUS DRIP
     Route: 041
     Dates: start: 20060221, end: 20060221
  3. MAXIPIME [Concomitant]
  4. FUNGUARD (MICAFUNGIN SODIUM) [Concomitant]
  5. STRONG NEO-MINOPHAGEN C (AMINOACETIC ACID/CYSTEINE/GLYCYRRHIZIC ACID) [Concomitant]
  6. SULFAMETHOXAZOLE + TRIMETHOPRIM [Concomitant]
  7. MUCOSTA (REBAMIPIDE) [Concomitant]
  8. NORVASC [Concomitant]
  9. AMOBAN (ZOPICLONE) [Concomitant]

REACTIONS (7)
  - HEPATIC FUNCTION ABNORMAL [None]
  - INFUSION RELATED REACTION [None]
  - LARYNGEAL OEDEMA [None]
  - NEUTROPENIA [None]
  - SINUSITIS ASPERGILLUS [None]
  - THROMBOCYTOPENIA [None]
  - WHITE BLOOD CELL COUNT DECREASED [None]
